FAERS Safety Report 4758648-0 (Version None)
Quarter: 2005Q3

REPORT INFORMATION
  Report Type: 
  Country: None (occurrence: None)
  Receive Date: 20050901
  Receipt Date: 20050822
  Transmission Date: 20060218
  Serious: Yes (Life-Threatening, Hospitalization)
  Sender: FDA-Public Use
  Company Number: 2005GB01621

PATIENT
  Age: 72 Year
  Sex: Female

DRUGS (6)
  1. ARIMIDEX [Suspect]
     Indication: BREAST CANCER
     Route: 048
     Dates: start: 20050526, end: 20050708
  2. NIFEDIPINE [Concomitant]
     Indication: HYPERTENSION
     Route: 048
  3. ARTHROTEC [Concomitant]
     Indication: ARTHRITIS
     Route: 048
     Dates: start: 19880101
  4. VENTOLIN [Concomitant]
     Indication: ASTHMA
     Route: 055
  5. BECLOMETHASONE DIPROPIONATE [Concomitant]
     Indication: ASTHMA
     Route: 055
  6. TAMOXIFEN CITRATE [Concomitant]
     Route: 048
     Dates: start: 20041122, end: 20050522

REACTIONS (10)
  - ANAEMIA [None]
  - ASTHENIA [None]
  - BALANCE DISORDER [None]
  - COUGH [None]
  - DYSPNOEA [None]
  - EPISTAXIS [None]
  - NEUTROPENIA [None]
  - POLLAKIURIA [None]
  - SNEEZING [None]
  - THROMBOCYTOPENIA [None]
